FAERS Safety Report 8470656-5 (Version None)
Quarter: 2012Q2

REPORT INFORMATION
  Report Type: 
  Country: None (occurrence: None)
  Receive Date: 20120627
  Receipt Date: 20120625
  Transmission Date: 20120825
  Serious: Yes (Life-Threatening, Hospitalization)
  Sender: FDA-Public Use
  Company Number: PHHY2011US06216

PATIENT
  Sex: Male

DRUGS (2)
  1. MYFORTIC [Suspect]
     Indication: LIVER TRANSPLANT
     Dosage: 360 MG, BID
     Route: 048
     Dates: start: 20030101
  2. MYFORTIC [Suspect]
     Dosage: 180 MG, BID
     Route: 048

REACTIONS (2)
  - RENAL FAILURE [None]
  - ENCEPHALOPATHY [None]
